FAERS Safety Report 21251884 (Version 1)
Quarter: 2022Q3

REPORT INFORMATION
  Report Type: Report from Study
  Country: ES (occurrence: ES)
  Receive Date: 20220825
  Receipt Date: 20220825
  Transmission Date: 20221026
  Serious: Yes (Hospitalization)
  Sender: FDA-Public Use
  Company Number: None

PATIENT
  Age: 11 Year
  Sex: Male

DRUGS (2)
  1. VINCRISTINE [Suspect]
     Active Substance: VINCRISTINE
     Indication: Precursor T-lymphoblastic lymphoma/leukaemia
     Dosage: VINCRISTINA (809A) , DURATION : 353 DAYS
     Dates: start: 2021, end: 20211220
  2. DOXORUBICIN [Suspect]
     Active Substance: DOXORUBICIN
     Indication: Precursor T-lymphoblastic lymphoma/leukaemia
     Dosage: DOXORUBICINA (202A) , DURATION : 353 DAYS
     Dates: start: 2021, end: 20211220

REACTIONS (1)
  - Febrile neutropenia [Recovered/Resolved]

NARRATIVE: CASE EVENT DATE: 20211223
